FAERS Safety Report 7276393-7 (Version None)
Quarter: 2011Q1

REPORT INFORMATION
  Report Type: 
  Country: None (occurrence: None)
  Receive Date: 20110204
  Receipt Date: 20110201
  Transmission Date: 20110831
  Serious: Yes (Other)
  Sender: FDA-Public Use
  Company Number: BR-PFIZER INC-2011022775

PATIENT
  Age: 47 Year
  Sex: Female
  Weight: 80.4 kg

DRUGS (4)
  1. ASS INFANTIL [Concomitant]
     Indication: ANTICOAGULANT THERAPY
     Dosage: UNK
  2. CHAMPIX [Suspect]
     Indication: SMOKING CESSATION THERAPY
     Dosage: 0.5 MG, UNK
     Route: 048
     Dates: start: 20110125
  3. ABLOK PLUS [Concomitant]
     Indication: HYPERTENSION
     Dosage: UNK
  4. RIVOTRIL [Concomitant]
     Indication: ANXIETY
     Dosage: UNK

REACTIONS (5)
  - SOMNOLENCE [None]
  - DYSGEUSIA [None]
  - BLOOD PRESSURE DECREASED [None]
  - ABNORMAL DREAMS [None]
  - LISTLESS [None]
